FAERS Safety Report 22311808 (Version 6)
Quarter: 2023Q4

REPORT INFORMATION
  Report Type: Report from Study
  Country: US (occurrence: US)
  Receive Date: 20230512
  Receipt Date: 20231123
  Transmission Date: 20240110
  Serious: Yes (Hospitalization)
  Sender: FDA-Public Use
  Company Number: US-ACADIA PHARMACEUTICALS INC.-ACA-2023-PIM-001240

PATIENT
  Sex: Male

DRUGS (2)
  1. NUPLAZID [Suspect]
     Active Substance: PIMAVANSERIN TARTRATE
     Indication: Parkinson^s disease psychosis
     Dosage: 34 MILLIGRAM, QD
     Route: 048
     Dates: start: 20230105
  2. NUPLAZID [Suspect]
     Active Substance: PIMAVANSERIN TARTRATE
     Indication: Parkinson^s disease
     Dosage: 34 MILLIGRAM, QD
     Route: 048
     Dates: start: 202303

REACTIONS (12)
  - Hospitalisation [Not Recovered/Not Resolved]
  - Bladder disorder [Unknown]
  - Anger [Unknown]
  - Urinary tract infection [Recovered/Resolved]
  - Delusion [Recovering/Resolving]
  - Product dose omission issue [Not Recovered/Not Resolved]
  - Hallucination [Unknown]
  - Drug ineffective [Unknown]
  - Hallucination [Unknown]
  - Aggression [Recovered/Resolved]
  - Hallucination [Unknown]
  - Gait disturbance [Not Recovered/Not Resolved]
